FAERS Safety Report 23252597 (Version 1)
Quarter: 2023Q4

REPORT INFORMATION
  Report Type: Spontaneous
  Country: US (occurrence: None)
  Receive Date: 20231201
  Receipt Date: 20231201
  Transmission Date: 20240110
  Serious: Yes (Other)
  Sender: FDA-Public Use
  Company Number: None

PATIENT
  Age: 34 Year
  Sex: Female

DRUGS (1)
  1. EPCLUSA [Suspect]
     Active Substance: SOFOSBUVIR\VELPATASVIR
     Dosage: FREQUENCY : DAILY;?

REACTIONS (7)
  - Inappropriate schedule of product administration [None]
  - COVID-19 [None]
  - Upper respiratory tract infection [None]
  - Fatigue [None]
  - Systemic lupus erythematosus [None]
  - Contraindication to vaccination [None]
  - COVID-19 immunisation [None]
